FAERS Safety Report 23933678 (Version 1)
Quarter: 2024Q2

REPORT INFORMATION
  Report Type: Spontaneous
  Country: US (occurrence: None)
  Receive Date: 20240603
  Receipt Date: 20240603
  Transmission Date: 20240716
  Serious: Yes (Other)
  Sender: FDA-Public Use
  Company Number: None

PATIENT
  Age: 34 Year
  Sex: Female

DRUGS (1)
  1. PROGESTERONE [Suspect]
     Active Substance: PROGESTERONE
     Indication: Infertility female
     Dosage: OTHER FREQUENCY : EVERY 3RD DAY;?

REACTIONS (3)
  - Transcription medication error [None]
  - Product formulation issue [None]
  - Product formulation issue [None]

NARRATIVE: CASE EVENT DATE: 20240427
